FAERS Safety Report 9252514 (Version 1)
Quarter: 2013Q2

REPORT INFORMATION
  Report Type: Spontaneous
  Country: US (occurrence: US)
  Receive Date: 20130424
  Receipt Date: 20130424
  Transmission Date: 20140414
  Serious: No
  Sender: FDA-Public Use
  Company Number: US-BAYER-2013-051426

PATIENT
  Age: 76 Year
  Sex: Female
  Weight: 108.84 kg

DRUGS (1)
  1. ALEVE TABLET [Suspect]
     Dosage: 2 DF, UNK
     Route: 048

REACTIONS (1)
  - Pruritus generalised [Not Recovered/Not Resolved]
